FAERS Safety Report 7793247-8 (Version None)
Quarter: 2011Q4

REPORT INFORMATION
  Report Type: 
  Country: None (occurrence: None)
  Receive Date: 20111003
  Receipt Date: 20110927
  Transmission Date: 20120403
  Serious: Yes (Life-Threatening)
  Sender: FDA-Public Use
  Company Number: DE-CELGENEUS-062-50794-11093367

PATIENT
  Age: 79 Year
  Sex: Male
  Weight: 78 kg

DRUGS (3)
  1. VIDAZA [Suspect]
     Route: 041
     Dates: start: 20110913
  2. IDARUBICIN HCL [Suspect]
     Route: 041
     Dates: start: 20110913
  3. ETOPOSIDE [Suspect]
     Route: 041
     Dates: start: 20110913

REACTIONS (1)
  - SEPSIS [None]
